FAERS Safety Report 15463906 (Version 1)
Quarter: 2018Q4

REPORT INFORMATION
  Report Type: Spontaneous
  Country: JP (occurrence: JP)
  Receive Date: 20181004
  Receipt Date: 20181004
  Transmission Date: 20190204
  Serious: Yes (Death)
  Sender: FDA-Public Use
  Company Number: JP-PFIZER INC-2018398444

PATIENT
  Sex: Female

DRUGS (4)
  1. CAMPTO [Suspect]
     Active Substance: IRINOTECAN
     Indication: COLON CANCER
     Dosage: UNK, 1X/DAY
     Route: 041
  2. LEVOFOLINATE CALCIUM [Concomitant]
     Active Substance: LEVOLEUCOVORIN CALCIUM
     Dosage: UNK (2 CYCLES)
  3. ZALTRAP [Concomitant]
     Active Substance: ZIV-AFLIBERCEPT
     Dosage: UNK (2 CYCLES)
  4. 5-FU [FLUOROURACIL] [Concomitant]
     Active Substance: FLUOROURACIL
     Dosage: UNK (2 CYCLES)

REACTIONS (2)
  - Stomatitis [Fatal]
  - Diarrhoea [Fatal]

NARRATIVE: CASE EVENT DATE: 20180906
